FAERS Safety Report 25038353 (Version 1)
Quarter: 2025Q1

REPORT INFORMATION
  Report Type: Spontaneous
  Country: US (occurrence: US)
  Receive Date: 20250304
  Receipt Date: 20250304
  Transmission Date: 20250409
  Serious: Yes (Hospitalization, Other)
  Sender: NOVARTIS
  Company Number: US-002147023-NVSC2025US033096

PATIENT
  Sex: Female

DRUGS (7)
  1. GLEEVEC [Suspect]
     Active Substance: IMATINIB MESYLATE
     Indication: Chronic myeloid leukaemia
     Route: 065
  2. GLEEVEC [Suspect]
     Active Substance: IMATINIB MESYLATE
     Route: 065
     Dates: start: 20230327, end: 202309
  3. GLEEVEC [Suspect]
     Active Substance: IMATINIB MESYLATE
     Route: 065
     Dates: start: 20240206, end: 202409
  4. GLEEVEC [Suspect]
     Active Substance: IMATINIB MESYLATE
     Route: 065
     Dates: start: 20241103
  5. BOSULIF [Suspect]
     Active Substance: BOSUTINIB MONOHYDRATE
     Indication: Chronic myeloid leukaemia
     Route: 065
     Dates: start: 202410
  6. BOSULIF [Suspect]
     Active Substance: BOSUTINIB MONOHYDRATE
     Route: 065
     Dates: start: 202411
  7. BOSULIF [Suspect]
     Active Substance: BOSUTINIB MONOHYDRATE
     Route: 065
     Dates: start: 20241210

REACTIONS (13)
  - Illness [Unknown]
  - Chronic respiratory failure [Unknown]
  - Hypoparathyroidism [Unknown]
  - Gait disturbance [Recovering/Resolving]
  - Pallor [Recovering/Resolving]
  - Abdominal discomfort [Unknown]
  - Peripheral swelling [Not Recovered/Not Resolved]
  - Fall [Unknown]
  - Haemoglobin decreased [Unknown]
  - Nausea [Unknown]
  - Fatigue [Recovering/Resolving]
  - Vomiting [Unknown]
  - Diarrhoea [Unknown]

NARRATIVE: CASE EVENT DATE: 20230416
